FAERS Safety Report 9196382 (Version 2)
Quarter: 2013Q2

REPORT INFORMATION
  Report Type: Spontaneous
  Country: PL (occurrence: PL)
  Receive Date: 20130328
  Receipt Date: 20130507
  Transmission Date: 20140414
  Serious: Yes (Hospitalization, Other)
  Sender: FDA-Public Use
  Company Number: PL-PFIZER INC-2013094385

PATIENT
  Age: 55 Year
  Sex: Male
  Weight: 80 kg

DRUGS (3)
  1. ZETAMAX [Suspect]
     Indication: BRONCHITIS
     Dosage: 2 G, 1X/DAY
     Route: 048
     Dates: start: 20100409, end: 20100416
  2. ACETYLCYSTEINE [Concomitant]
     Dosage: 600 MG, UNK
     Dates: start: 20100409, end: 20100422
  3. ACODIN [Concomitant]
     Dosage: 2 UNK, X 1 TABLET
     Dates: start: 20100409, end: 20100422

REACTIONS (3)
  - Megacolon [Recovered/Resolved]
  - Diabetes mellitus [Unknown]
  - Anorectal varices [Unknown]
